FAERS Safety Report 7835120-2 (Version None)
Quarter: 2011Q4

REPORT INFORMATION
  Report Type: 
  Country: None (occurrence: None)
  Receive Date: 20111024
  Receipt Date: 20111011
  Transmission Date: 20120403
  Serious: Yes (Hospitalization)
  Sender: FDA-Public Use
  Company Number: HU-ELI_LILLY_AND_COMPANY-HU201110003171

PATIENT
  Age: 30 Year
  Sex: Male

DRUGS (1)
  1. ZYPREXA [Suspect]
     Dosage: 20 MG, QD
     Dates: start: 20080101

REACTIONS (2)
  - POLYURIA [None]
  - PNEUMONIA [None]
